FAERS Safety Report 17941202 (Version 1)
Quarter: 2020Q2

REPORT INFORMATION
  Report Type: Spontaneous
  Country: US (occurrence: US)
  Receive Date: 20200625
  Receipt Date: 20200625
  Transmission Date: 20200714
  Serious: No
  Sender: FDA-Public Use
  Company Number: US-SA-2020SA156411

PATIENT

DRUGS (5)
  1. PREDNISONE. [Concomitant]
     Active Substance: PREDNISONE
  2. FAMOTIDINE. [Concomitant]
     Active Substance: FAMOTIDINE
  3. PLAQUENIL [Concomitant]
     Active Substance: HYDROXYCHLOROQUINE SULFATE
  4. DUPIXENT [Suspect]
     Active Substance: DUPILUMAB
     Indication: URTICARIA
     Dosage: 300 MG, QOW
     Route: 058
     Dates: start: 202005
  5. CITALOPRAM [Concomitant]
     Active Substance: CITALOPRAM HYDROBROMIDE

REACTIONS (3)
  - Sleep disorder [Unknown]
  - Therapeutic product ineffective for unapproved indication [Unknown]
  - Product use in unapproved indication [Unknown]
